FAERS Safety Report 24917615 (Version 1)
Quarter: 2025Q1

REPORT INFORMATION
  Report Type: Spontaneous
  Country: US (occurrence: US)
  Receive Date: 20250203
  Receipt Date: 20250203
  Transmission Date: 20250409
  Serious: No
  Sender: SANOFI AVENTIS
  Company Number: US-SA-2025SA028604

PATIENT
  Sex: Male

DRUGS (2)
  1. TZIELD [Suspect]
     Active Substance: TEPLIZUMAB-MZWV
     Indication: Type 1 diabetes mellitus
     Dosage: QD
     Route: 042
     Dates: start: 20250123
  2. TZIELD [Suspect]
     Active Substance: TEPLIZUMAB-MZWV
     Indication: Diabetes prophylaxis

REACTIONS (1)
  - Off label use [Unknown]

NARRATIVE: CASE EVENT DATE: 20250123
